FAERS Safety Report 8426563-7 (Version None)
Quarter: 2012Q2

REPORT INFORMATION
  Report Type: 
  Country: None (occurrence: None)
  Receive Date: 20120611
  Receipt Date: 20120607
  Transmission Date: 20120825
  Serious: Yes (Death, Hospitalization)
  Sender: FDA-Public Use
  Company Number: TW-BAYER-201044053GPV

PATIENT
  Age: 58 Year
  Sex: Male
  Weight: 73 kg

DRUGS (16)
  1. PLACEBO [Suspect]
     Indication: HEPATIC NEOPLASM MALIGNANT
     Dosage: 150 MG, QD
     Route: 048
     Dates: start: 20100607, end: 20100919
  2. BROWN MIXTURE [Concomitant]
     Indication: COUGH
     Dosage: 60 ML, UNK
     Dates: start: 20100920, end: 20100924
  3. BARACLUDE [Concomitant]
     Indication: ASPARTATE AMINOTRANSFERASE INCREASED
     Dosage: 0.5 MG, UNK
     Dates: start: 20100920, end: 20101020
  4. SYMBICORT [Concomitant]
     Indication: ASTHMA
     Dosage: 4 PUFF(S), UNK
     Dates: start: 20100908, end: 20100929
  5. SORAFENIB [Suspect]
     Dosage: 400 MG, BID
     Route: 048
     Dates: start: 20100719, end: 20100830
  6. AMBROXOL [Concomitant]
     Indication: COUGH
     Dosage: 90 MG, UNK
     Dates: start: 20100920, end: 20101011
  7. DEXAMETHASONE [Concomitant]
     Indication: COUGH
     Dosage: 4 MG, UNK
     Dates: start: 20100901, end: 20100929
  8. BENZONATATE [Concomitant]
     Indication: COUGH
     Dosage: 400 MG, UNK
     Dates: start: 20100901, end: 20100902
  9. SORAFENIB [Suspect]
     Indication: HEPATIC NEOPLASM MALIGNANT
     Dosage: 400 MG, BID
     Route: 048
     Dates: start: 20100607, end: 20100719
  10. SORAFENIB [Suspect]
     Dosage: 400 MG, BID
     Route: 048
     Dates: start: 20100830, end: 20100920
  11. THEOPHYLLINE [Concomitant]
     Indication: COUGH
     Dosage: 125 MG, UNK
     Dates: start: 20100901, end: 20100929
  12. LORATADINE AND PSEUDOEPHEDRINE SULFATE [Concomitant]
     Indication: RHINITIS HYPERTROPHIC
     Dosage: 1 DF, UNK
     Dates: start: 20100901, end: 20100908
  13. HYDROXYZINE HCL [Concomitant]
     Indication: COUGH
     Dosage: 25 MG, UNK
     Dates: start: 20100901, end: 20100908
  14. FEXOFENADINE [Concomitant]
     Indication: RHINITIS HYPERTROPHIC
     Dosage: 180 MG, UNK
     Dates: start: 20100908, end: 20100929
  15. BROWN MIXTURE [Concomitant]
     Dosage: 40 ML, UNK
     Dates: start: 20100901, end: 20100904
  16. NSAID'S [Concomitant]
     Indication: COUGH
     Dosage: 4 MG, UNK
     Dates: start: 20100901, end: 20100929

REACTIONS (2)
  - DYSPNOEA [None]
  - HEPATIC FAILURE [None]
